FAERS Safety Report 9432616 (Version 1)
Quarter: 2013Q3

REPORT INFORMATION
  Report Type: Spontaneous
  Country: US (occurrence: US)
  Receive Date: 20130731
  Receipt Date: 20130731
  Transmission Date: 20140515
  Serious: Yes (Other)
  Sender: FDA-Public Use
  Company Number: CHPA2013US011755

PATIENT
  Sex: Female

DRUGS (1)
  1. TRANSDERM SCOP [Suspect]
     Indication: MOTION SICKNESS
     Dosage: UNK, UNK
     Route: 062

REACTIONS (2)
  - Cognitive disorder [Recovered/Resolved]
  - Wrong technique in drug usage process [Unknown]
